FAERS Safety Report 5359451-3 (Version None)
Quarter: 2007Q2

REPORT INFORMATION
  Report Type: 
  Country: None (occurrence: None)
  Receive Date: 20070615
  Receipt Date: 20070605
  Transmission Date: 20071010
  Serious: Yes (Life-Threatening, Hospitalization, Disabling, Other)
  Sender: FDA-Public Use
  Company Number: CL-PFIZER INC-2007040918

PATIENT
  Age: 45 Year
  Sex: Female

DRUGS (1)
  1. VARENICLINE TABLETS [Suspect]

REACTIONS (11)
  - ABDOMINAL PAIN UPPER [None]
  - ANAL DISCOMFORT [None]
  - DYSPNOEA [None]
  - GASTROINTESTINAL INFLAMMATION [None]
  - GINGIVAL INFECTION [None]
  - HYPERSENSITIVITY [None]
  - INFLAMMATION [None]
  - PHARYNGITIS [None]
  - PHARYNGOLARYNGEAL PAIN [None]
  - VULVOVAGINAL DISCOMFORT [None]
  - VULVOVAGINAL PRURITUS [None]
